FAERS Safety Report 9439165 (Version 1)
Quarter: 2013Q3

REPORT INFORMATION
  Report Type: Spontaneous
  Country: US (occurrence: US)
  Receive Date: 20130802
  Receipt Date: 20130802
  Transmission Date: 20140515
  Serious: Yes (Hospitalization, Other)
  Sender: FDA-Public Use
  Company Number: US-ABBOTT-13P-163-1124064-00

PATIENT
  Age: 66 Year
  Sex: Female

DRUGS (6)
  1. SYNTHROID [Suspect]
     Indication: PRODUCT USED FOR UNKNOWN INDICATION
  2. CALCIUM CARBONATE [Interacting]
     Indication: ABDOMINAL DISCOMFORT
     Dates: start: 20130610
  3. NEBIVOLOL [Interacting]
     Indication: PRODUCT USED FOR UNKNOWN INDICATION
  4. JANUMET [Interacting]
     Indication: PRODUCT USED FOR UNKNOWN INDICATION
  5. ASPIRIN [Interacting]
     Indication: PRODUCT USED FOR UNKNOWN INDICATION
  6. MULTIVITAMIN [Interacting]
     Indication: PRODUCT USED FOR UNKNOWN INDICATION

REACTIONS (10)
  - Convulsion [Unknown]
  - Loss of consciousness [Unknown]
  - Immobile [Unknown]
  - Speech disorder [Unknown]
  - Nervous system disorder [Unknown]
  - Cerebral cyst [Unknown]
  - Aphasia [Recovering/Resolving]
  - Drug interaction [Unknown]
  - Convulsion [Unknown]
  - Headache [Unknown]
